FAERS Safety Report 25056777 (Version 2)
Quarter: 2025Q1

REPORT INFORMATION
  Report Type: Spontaneous
  Country: US (occurrence: US)
  Receive Date: 20250310
  Receipt Date: 20250322
  Transmission Date: 20250408
  Serious: Yes (Life-Threatening)
  Sender: TEVA
  Company Number: US-TEVA-VS-3306009

PATIENT
  Age: 6 Year
  Sex: Female

DRUGS (3)
  1. FLUTICASONE [Suspect]
     Active Substance: FLUTICASONE
     Indication: Rhinitis allergic
     Dosage: FLUTICASONE-PROPIONATE METERED DOSE INHALER; TWO PUFFS TWICE DAILY; CONTINUOUS FOR 18 MONTHS
     Route: 055
  2. FLUTICASONE [Suspect]
     Active Substance: FLUTICASONE
     Indication: Asthma
  3. MOMETASONE FUROATE [Suspect]
     Active Substance: MOMETASONE FUROATE
     Indication: Rhinitis allergic
     Dosage: 2 SPRAY PER NOSTRIL DAILY; CONTINUOUS FOR 18 MONTHS
     Route: 045

REACTIONS (5)
  - Prescribed overdose [Unknown]
  - Off label use [Unknown]
  - Pseudo Cushing^s syndrome [Recovered/Resolved]
  - Adrenocortical insufficiency acute [Recovered/Resolved]
  - Hypotension [Recovered/Resolved]
